FAERS Safety Report 4485833-8 (Version None)
Quarter: 2004Q3

REPORT INFORMATION
  Report Type: 
  Country: None (occurrence: None)
  Receive Date: 20040921
  Receipt Date: 20031107
  Transmission Date: 20050211
  Serious: Yes (Hospitalization)
  Sender: FDA-Public Use
  Company Number: 163-20785-03110134

PATIENT
  Age: 56 Year
  Sex: Female

DRUGS (18)
  1. THALOMID [Suspect]
     Indication: MULTIPLE MYELOMA
     Dosage: 50 MG, DAILY, ORAL
     Route: 048
     Dates: start: 20030820
  2. DEXAMETHASONE [Suspect]
     Indication: MULTIPLE MYELOMA
     Dosage: 20 MG, DAYS 1-4 Q 3 WKS, ORAL
     Route: 048
     Dates: start: 20030820
  3. CISPLATIN [Suspect]
     Indication: MULTIPLE MYELOMA
     Dosage: 10 MG, DAYS 1-4
     Dates: start: 20030104
  4. ADRIAMYCIN PFS [Suspect]
     Indication: MULTIPLE MYELOMA
     Dosage: 10 MG, DAYS 1-4
     Dates: start: 20030104
  5. CYCLOPHOSPHAMIDE [Suspect]
     Indication: MULTIPLE MYELOMA
     Dosage: 400 MG/M2, DAYS 1-4
     Dates: start: 20030104
  6. MELPHALAN (MELPHALAN) (UNKNOWN) [Suspect]
     Indication: MULTIPLE MYELOMA
     Dosage: 200 MG/M2
     Dates: start: 20030225
  7. DIFLUCAN [Concomitant]
  8. OXYCONTIN [Concomitant]
  9. TEQUIN [Concomitant]
  10. AMITRIPTYLINE HCL [Concomitant]
  11. FOLIC ACID [Concomitant]
  12. SALAGEN [Concomitant]
  13. CELEXA [Concomitant]
  14. SYNTHROID [Concomitant]
  15. PROTONIX [Concomitant]
  16. ASCAL (CALCIUM CARBONATE) [Concomitant]
  17. METOCLOPRAMIDE [Concomitant]
  18. CLONAZEPAM [Concomitant]

REACTIONS (5)
  - CHOLELITHIASIS [None]
  - DRY MOUTH [None]
  - NAUSEA [None]
  - OVARIAN CYST [None]
  - STOMATITIS [None]
